FAERS Safety Report 9837342 (Version 1)
Quarter: 2013Q4

REPORT INFORMATION
  Report Type: Spontaneous
  Country: US (occurrence: None)
  Receive Date: 20131205
  Receipt Date: 20131205
  Transmission Date: 20140711
  Serious: Yes (Other)
  Sender: FDA-Public Use
  Company Number: 163-POMAL-13094119

PATIENT
  Age: 70 Year
  Sex: Female
  Weight: 72.58 kg

DRUGS (4)
  1. POMALYST (POMALIDOMIDE) (3 MILLIGRAM, CAPSULES) [Suspect]
     Indication: PLASMA CELL MYELOMA
     Dosage: 1 IN 1 D
     Route: 048
     Dates: start: 201306
  2. WARFARIN [Concomitant]
  3. VALACYCLOVIR [Concomitant]
  4. DEXAMETHASONE [Concomitant]

REACTIONS (3)
  - Heart rate increased [None]
  - Dyspnoea [None]
  - Fatigue [None]
